FAERS Safety Report 7111095-9 (Version None)
Quarter: 2010Q4

REPORT INFORMATION
  Report Type: 
  Country: None (occurrence: None)
  Receive Date: 20101118
  Receipt Date: 20101108
  Transmission Date: 20110411
  Serious: Yes (Other)
  Sender: FDA-Public Use
  Company Number: NL-US-EMD SERONO, INC.-7022841

PATIENT
  Sex: Female
  Weight: 62 kg

DRUGS (12)
  1. REBIF [Suspect]
     Indication: MULTIPLE SCLEROSIS
     Route: 058
     Dates: start: 20100720, end: 20100801
  2. REBIF [Suspect]
     Route: 058
     Dates: start: 20100803, end: 20100815
  3. REBIF [Suspect]
     Route: 058
     Dates: start: 20100817
  4. CETIRIZINE HCL [Concomitant]
     Indication: SEASONAL ALLERGY
     Route: 048
  5. CETIRIZINE HCL [Concomitant]
     Indication: ANTIALLERGIC THERAPY
  6. CLEMASTINE FUMARATE [Concomitant]
     Indication: SEASONAL ALLERGY
     Route: 048
  7. CLEMASTINE FUMARATE [Concomitant]
     Indication: ANTIALLERGIC THERAPY
  8. DICLOFENAC SODIUM [Concomitant]
     Indication: NECK PAIN
     Route: 048
     Dates: start: 20090101
  9. IBUPROFEN [Concomitant]
     Indication: INJECTION SITE PAIN
     Route: 048
     Dates: start: 20100720
  10. OLMESARTAN MEDOXOMIL [Concomitant]
     Indication: HYPERTENSION
     Route: 048
     Dates: start: 20090101
  11. PANTOPRAZOLE [Concomitant]
     Indication: DYSPEPSIA
     Route: 048
     Dates: start: 20090101
  12. ACETAMINOPHEN W/ CODEINE [Concomitant]
     Indication: NECK PAIN
     Route: 054
     Dates: start: 20090101, end: 20100101

REACTIONS (6)
  - ALANINE AMINOTRANSFERASE INCREASED [None]
  - ASPARTATE AMINOTRANSFERASE INCREASED [None]
  - BLOOD LACTATE DEHYDROGENASE INCREASED [None]
  - GAMMA-GLUTAMYLTRANSFERASE INCREASED [None]
  - INFLUENZA LIKE ILLNESS [None]
  - INJECTION SITE ERYTHEMA [None]
